FAERS Safety Report 10741641 (Version 1)
Quarter: 2015Q1

REPORT INFORMATION
  Report Type: Spontaneous
  Country: US (occurrence: None)
  Receive Date: 20150123
  Receipt Date: 20150123
  Transmission Date: 20150721
  Serious: Yes (Hospitalization)
  Sender: FDA-Public Use
  Company Number: IPC201501-000010

PATIENT
  Age: 34 Year
  Sex: Male

DRUGS (3)
  1. PYRAZINIAMIDE (PYRAZINAMIDE) (PYRAZINAMIDE) [Suspect]
     Active Substance: PYRAZINAMIDE
     Indication: TUBERCULOSIS
  2. CITRIC ACID /SODIUM CITRATE (CITRIC ACID/SODIUM CITRATE) [Concomitant]
     Active Substance: CITRIC ACID MONOHYDRATE\SODIUM CITRATE
  3. ALLOPURINOL (ALLOPURINOL) (ALLOPURINOL) [Suspect]
     Active Substance: ALLOPURINOL

REACTIONS (3)
  - Drug interaction [None]
  - Hyperuricaemia [None]
  - Urate nephropathy [None]
